FAERS Safety Report 9068720 (Version 1)
Quarter: 2013Q1

REPORT INFORMATION
  Report Type: Spontaneous
  Country: US (occurrence: None)
  Receive Date: 20130212
  Receipt Date: 20130212
  Transmission Date: 20140127
  Serious: Yes (Life-Threatening, Other)
  Sender: FDA-Public Use
  Company Number: None

PATIENT
  Age: 61 Year
  Sex: Female
  Weight: 79.83 kg

DRUGS (3)
  1. AMLODIPINE BESYLATE [Suspect]
     Indication: HYPERTENSION
     Dosage: 10 MGS 1 TAB DAILY
     Dates: start: 20121011
  2. SIMVASTATIN [Suspect]
     Indication: BLOOD CHOLESTEROL INCREASED
     Dosage: 20 MGS 1 TAB DAILY
     Dates: start: 20121011
  3. ASPIR-EC [Concomitant]

REACTIONS (9)
  - Feeling hot [None]
  - Headache [None]
  - Pain [None]
  - Muscular weakness [None]
  - Gait disturbance [None]
  - Ear pain [None]
  - Oral pain [None]
  - Dizziness [None]
  - Chest pain [None]
